FAERS Safety Report 25947871 (Version 1)
Quarter: 2025Q4

REPORT INFORMATION
  Report Type: Spontaneous
  Country: EU (occurrence: EU)
  Receive Date: 20251022
  Receipt Date: 20251022
  Transmission Date: 20260117
  Serious: Yes (Life-Threatening, Hospitalization, Other)
  Sender: Haleon PLC
  Company Number: EU-EMA-DD-20210119-kumarvn_p-140325

PATIENT
  Age: 82 Year
  Sex: Female

DRUGS (81)
  1. ACETAMINOPHEN [Suspect]
     Active Substance: ACETAMINOPHEN
     Indication: Analgesic therapy
     Dosage: UNK
     Route: 048
  2. ACETAMINOPHEN [Suspect]
     Active Substance: ACETAMINOPHEN
     Indication: Pain
     Dosage: UNK
     Route: 048
  3. IBUPROFEN [Suspect]
     Active Substance: IBUPROFEN
     Indication: Product used for unknown indication
     Route: 048
  4. GLIQUIDONE [Suspect]
     Active Substance: GLIQUIDONE
     Indication: Product used for unknown indication
     Dosage: UNK
     Route: 016
  5. GLIQUIDONE [Suspect]
     Active Substance: GLIQUIDONE
     Dosage: UNK
     Route: 016
  6. GLIQUIDONE [Suspect]
     Active Substance: GLIQUIDONE
     Route: 048
  7. GLIQUIDONE [Suspect]
     Active Substance: GLIQUIDONE
     Route: 016
  8. VALPROATE [Suspect]
     Active Substance: VALPROIC ACID
     Indication: Partial seizures
  9. VALPROATE [Suspect]
     Active Substance: VALPROIC ACID
     Indication: Seizure
  10. VALPROATE [Suspect]
     Active Substance: VALPROIC ACID
     Indication: Generalised tonic-clonic seizure
  11. IBUPROFEN SODIUM [Suspect]
     Active Substance: IBUPROFEN SODIUM
     Indication: Analgesic therapy
     Dosage: UNK
     Route: 048
  12. IBUPROFEN SODIUM [Suspect]
     Active Substance: IBUPROFEN SODIUM
     Indication: Pain
  13. LEVETIRACETAM [Suspect]
     Active Substance: LEVETIRACETAM
     Indication: Product used for unknown indication
     Dosage: 3000 MG, QD
     Route: 042
  14. LEVETIRACETAM [Suspect]
     Active Substance: LEVETIRACETAM
     Indication: Generalised tonic-clonic seizure
     Dosage: 40 MG/KG
     Route: 042
  15. LEVETIRACETAM [Suspect]
     Active Substance: LEVETIRACETAM
     Indication: Partial seizures
     Dosage: 40 MG/M2
     Route: 042
  16. LERCANIDIPINE HYDROCHLORIDE [Concomitant]
     Active Substance: LERCANIDIPINE HYDROCHLORIDE
     Indication: Hypertension
     Dosage: UNK
     Route: 048
  17. LERCANIDIPINE HYDROCHLORIDE [Concomitant]
     Active Substance: LERCANIDIPINE HYDROCHLORIDE
     Dosage: UNK
     Route: 016
  18. RAMIPRIL [Concomitant]
     Active Substance: RAMIPRIL
     Indication: Hypertension
     Dosage: UNK
     Route: 048
  19. RAMIPRIL [Concomitant]
     Active Substance: RAMIPRIL
     Dosage: UNK
     Route: 048
  20. RAMIPRIL [Concomitant]
     Active Substance: RAMIPRIL
     Dosage: UNK
     Route: 048
  21. ASPIRIN\GLYCINE [Concomitant]
     Active Substance: ASPIRIN\GLYCINE
     Indication: Product used for unknown indication
     Dosage: TABLET
     Route: 048
  22. ASPIRIN\GLYCINE [Concomitant]
     Active Substance: ASPIRIN\GLYCINE
     Indication: Product used for unknown indication
     Dosage: UNK
     Route: 048
  23. ASPIRIN\GLYCINE [Concomitant]
     Active Substance: ASPIRIN\GLYCINE
     Dosage: UNK
     Route: 048
  24. EUTHYROX [Concomitant]
     Active Substance: LEVOTHYROXINE SODIUM
     Indication: Hypothyroidism
     Dosage: ROA: ORAL
  25. EUTHYROX [Concomitant]
     Active Substance: LEVOTHYROXINE SODIUM
     Indication: Product used for unknown indication
     Dosage: ROA: UNKNOWN
  26. SIMVASTATIN [Concomitant]
     Active Substance: SIMVASTATIN
     Indication: Hypercholesterolaemia
     Dosage: UNK
     Route: 048
  27. SIMVASTATIN [Concomitant]
     Active Substance: SIMVASTATIN
     Dosage: UNK
     Route: 016
  28. METAMIZOLE SODIUM [Suspect]
     Active Substance: METAMIZOLE SODIUM
     Indication: Pain
     Dosage: UNK
  29. METAMIZOLE SODIUM [Suspect]
     Active Substance: METAMIZOLE SODIUM
     Dosage: UNK
  30. METAMIZOLE SODIUM [Suspect]
     Active Substance: METAMIZOLE SODIUM
  31. PROPOFOL [Suspect]
     Active Substance: PROPOFOL
     Indication: Clonic convulsion
     Dosage: UNK
     Route: 016
  32. PROPOFOL [Suspect]
     Active Substance: PROPOFOL
     Indication: Epilepsy
  33. PROPOFOL [Suspect]
     Active Substance: PROPOFOL
     Indication: Generalised tonic-clonic seizure
  34. SIMVASTATIN [Concomitant]
     Active Substance: SIMVASTATIN
     Indication: Product used for unknown indication
     Dosage: ROA: UNKNOWN
  35. SIMVASTATIN [Concomitant]
     Active Substance: SIMVASTATIN
     Dosage: ROA: INTRACARDIAC
  36. CEFTRIAXONE SODIUM [Suspect]
     Active Substance: CEFTRIAXONE SODIUM
     Indication: Pneumonia
     Dosage: TABLET
     Route: 048
  37. CEFTRIAXONE SODIUM [Suspect]
     Active Substance: CEFTRIAXONE SODIUM
     Dosage: UNK
     Route: 048
  38. CEFTRIAXONE SODIUM [Suspect]
     Active Substance: CEFTRIAXONE SODIUM
     Dosage: UNK
     Route: 048
  39. BETAXOLOL HYDROCHLORIDE [Concomitant]
     Active Substance: BETAXOLOL HYDROCHLORIDE
     Indication: Hypertension
     Dosage: TABLETY
     Route: 048
  40. BETAXOLOL HYDROCHLORIDE [Concomitant]
     Active Substance: BETAXOLOL HYDROCHLORIDE
     Dosage: UNK
     Route: 048
  41. BETAXOLOL HYDROCHLORIDE [Concomitant]
     Active Substance: BETAXOLOL HYDROCHLORIDE
     Route: 048
  42. GLIQUIDONE [Concomitant]
     Active Substance: GLIQUIDONE
     Indication: Product used for unknown indication
     Route: 048
  43. GLIQUIDONE [Concomitant]
     Active Substance: GLIQUIDONE
     Route: 048
  44. GLIQUIDONE [Concomitant]
     Active Substance: GLIQUIDONE
     Dosage: UNK
     Route: 048
  45. GLIQUIDONE [Concomitant]
     Active Substance: GLIQUIDONE
     Dosage: UNK
     Route: 048
  46. AZATHIOPRINE [Concomitant]
     Active Substance: AZATHIOPRINE
     Indication: Immunosuppressant drug therapy
  47. AZATHIOPRINE [Concomitant]
     Active Substance: AZATHIOPRINE
  48. ALLOPURINOL [Suspect]
     Active Substance: ALLOPURINOL
     Indication: Gout
     Dosage: ROA: ORAL
  49. ALLOPURINOL [Suspect]
     Active Substance: ALLOPURINOL
     Dosage: ROA: UNKNOWN
  50. AMOXICILLIN [Suspect]
     Active Substance: AMOXICILLIN
     Indication: Pneumonia
     Dosage: UNK
     Route: 048
  51. GLYCINE [Concomitant]
     Active Substance: GLYCINE
     Indication: Product used for unknown indication
     Dosage: UNK
  52. GLYCINE [Concomitant]
     Active Substance: GLYCINE
     Dosage: UNK
  53. GLYCINE [Concomitant]
     Active Substance: GLYCINE
     Dosage: ROA: UNKNOWN
  54. METAMIZOLE [Suspect]
     Active Substance: METAMIZOLE
     Indication: Pain
     Dosage: UNK
     Route: 048
  55. METAMIZOLE [Suspect]
     Active Substance: METAMIZOLE
     Dosage: UNK
  56. METAMIZOLE [Suspect]
     Active Substance: METAMIZOLE
     Dosage: UNK
  57. METAMIZOLE [Suspect]
     Active Substance: METAMIZOLE
     Dosage: UNK
     Route: 048
  58. PHENYTOIN [Suspect]
     Active Substance: PHENYTOIN
     Indication: Seizure
  59. PHENYTOIN [Suspect]
     Active Substance: PHENYTOIN
     Indication: Generalised tonic-clonic seizure
     Dosage: ROA: INTRAVENOUS (NOT OTHERWISE SPECIFIED), 20 MG/KG, QD
  60. PHENYTOIN [Suspect]
     Active Substance: PHENYTOIN
     Indication: Partial seizures
     Dosage: ROA: UNKNOWN, DOSE FORM: UNKNOWN
  61. PHENYTOIN [Suspect]
     Active Substance: PHENYTOIN
     Indication: Status epilepticus
     Dosage: DOSE FORM: UNKNOWN, ROA: UNKNOWN
  62. PHENYTOIN [Suspect]
     Active Substance: PHENYTOIN
     Dosage: DOSE FORM: UNKNOWN, ROA: UNKNOWN
  63. FLUCONAZOLE [Suspect]
     Active Substance: FLUCONAZOLE
     Indication: Antifungal treatment
     Dosage: ROA: ORAL
  64. FLUCONAZOLE [Suspect]
     Active Substance: FLUCONAZOLE
     Indication: Pneumonia
     Dosage: ROA: ORAL
  65. FLUCONAZOLE [Suspect]
     Active Substance: FLUCONAZOLE
     Dosage: ROA: ORAL
  66. FLUCONAZOLE [Suspect]
     Active Substance: FLUCONAZOLE
     Dosage: ROA: UNKNOWN
  67. DIAZEPAM [Concomitant]
     Active Substance: DIAZEPAM
     Indication: Generalised tonic-clonic seizure
     Dosage: ROA: INTRAVENOUS (NOT OTHERWISE SPECIFIED)
  68. DIAZEPAM [Concomitant]
     Active Substance: DIAZEPAM
     Indication: Partial seizures
  69. DIAZEPAM [Concomitant]
     Active Substance: DIAZEPAM
     Indication: Hypertension
  70. cynt [Concomitant]
     Indication: Hypertension
     Route: 048
  71. ALLOPURINOL [Suspect]
     Active Substance: ALLOPURINOL
     Indication: Gout
     Dosage: ROA: ORAL
  72. ALLOPURINOL [Suspect]
     Active Substance: ALLOPURINOL
     Indication: Product used for unknown indication
     Dosage: ROA: ORAL
  73. ALLOPURINOL [Suspect]
     Active Substance: ALLOPURINOL
     Dosage: ROA: UNKNOWN
  74. ASPIRIN [Concomitant]
     Active Substance: ASPIRIN
     Indication: Analgesic therapy
     Dosage: ROA: UNKNOWN
  75. Lecanidipine [Concomitant]
     Indication: Product used for unknown indication
  76. RAMIPRIL [Concomitant]
     Active Substance: RAMIPRIL
     Indication: Product used for unknown indication
     Route: 048
  77. RAMIPRIL [Concomitant]
     Active Substance: RAMIPRIL
     Dosage: DOSE FORM: UNKNOWN
  78. BETAXOLOL [Concomitant]
     Active Substance: BETAXOLOL
     Indication: Product used for unknown indication
     Dosage: DOSE FORM: UNKNOWN
  79. MOXONIDINE [Concomitant]
     Active Substance: MOXONIDINE
     Indication: Product used for unknown indication
     Route: 048
  80. MOXONIDINE [Concomitant]
     Active Substance: MOXONIDINE
     Route: 048
  81. MOXONIDINE [Concomitant]
     Active Substance: MOXONIDINE
     Route: 048

REACTIONS (8)
  - Depressed level of consciousness [Recovering/Resolving]
  - Skin laceration [Recovered/Resolved with Sequelae]
  - Drug ineffective [Unknown]
  - Stevens-Johnson syndrome [Recovered/Resolved]
  - Sopor [Recovering/Resolving]
  - Status epilepticus [Recovering/Resolving]
  - Pneumonia [Recovering/Resolving]
  - Rash [Unknown]
